FAERS Safety Report 20904507 (Version 1)
Quarter: 2022Q2

REPORT INFORMATION
  Report Type: Report from Study
  Country: US (occurrence: US)
  Receive Date: 20220602
  Receipt Date: 20220602
  Transmission Date: 20220721
  Serious: No
  Sender: FDA-Public Use
  Company Number: US-CELGENE-USA-20211006858

PATIENT
  Age: 44 Year
  Sex: Male
  Weight: 183.7 kg

DRUGS (2)
  1. REVLIMID [Suspect]
     Active Substance: LENALIDOMIDE
     Indication: Plasma cell myeloma
     Dosage: 25 MILLIGRAM
     Route: 048
     Dates: start: 20210707
  2. REVLIMID [Suspect]
     Active Substance: LENALIDOMIDE
     Dosage: 21, THEN 7 DAYS OFF
     Route: 048
     Dates: start: 20210707

REACTIONS (3)
  - Sinusitis [Unknown]
  - Fluid retention [Recovered/Resolved]
  - Rash [Recovered/Resolved]

NARRATIVE: CASE EVENT DATE: 20210101
